FAERS Safety Report 11259781 (Version 1)
Quarter: 2015Q3

REPORT INFORMATION
  Report Type: Spontaneous
  Country: GB (occurrence: GB)
  Receive Date: 20150710
  Receipt Date: 20150710
  Transmission Date: 20151125
  Serious: Yes (Hospitalization)
  Sender: FDA-Public Use
  Company Number: GB-MERCK-1507GBR002953

PATIENT
  Age: 90 Year
  Sex: Male

DRUGS (2)
  1. BORTEZOMIB [Suspect]
     Active Substance: BORTEZOMIB
     Indication: PLASMA CELL MYELOMA
     Route: 065
  2. DEXAMETHASONE SODIUM PHOSPHATE. [Suspect]
     Active Substance: DEXAMETHASONE SODIUM PHOSPHATE
     Indication: PLASMA CELL MYELOMA
     Dosage: UNKNOWN
     Route: 065

REACTIONS (12)
  - Haematotoxicity [Unknown]
  - Pulmonary toxicity [Unknown]
  - Anaemia [Unknown]
  - Neuropathy peripheral [Unknown]
  - Cardiac disorder [Unknown]
  - Thrombocytopenia [Unknown]
  - Renal failure [Unknown]
  - Febrile neutropenia [Unknown]
  - Myocardial ischaemia [Unknown]
  - Bone pain [Unknown]
  - Constipation [Unknown]
  - Fatigue [Unknown]
